FAERS Safety Report 17855453 (Version 2)
Quarter: 2020Q3

REPORT INFORMATION
  Report Type: Spontaneous
  Country: US (occurrence: US)
  Receive Date: 20200603
  Receipt Date: 20200702
  Transmission Date: 20201103
  Serious: Yes (Death)
  Sender: FDA-Public Use
  Company Number: US-ROCHE-2614462

PATIENT
  Age: 61 Year
  Sex: Male

DRUGS (17)
  1. LOSARTAN. [Concomitant]
     Active Substance: LOSARTAN
  2. CEPHALEXIN [CEFALEXIN] [Concomitant]
     Active Substance: CEPHALEXIN
  3. TEMAZEPAM. [Concomitant]
     Active Substance: TEMAZEPAM
  4. PLENVU [Concomitant]
     Active Substance: ASCORBIC ACID\POLYETHYLENE GLYCOL 3350\POTASSIUM CHLORIDE\SODIUM ASCORBATE\SODIUM CHLORIDE\SODIUM SULFATE
  5. BUPROPION HCL [Concomitant]
     Active Substance: BUPROPION HYDROCHLORIDE
  6. NORTRIPTYLINE [Concomitant]
     Active Substance: NORTRIPTYLINE
  7. NYSTATIN. [Concomitant]
     Active Substance: NYSTATIN
  8. PREDNISONE. [Concomitant]
     Active Substance: PREDNISONE
  9. ALPRAZOLAM. [Concomitant]
     Active Substance: ALPRAZOLAM
  10. MYCOPHENOLATE [Concomitant]
     Active Substance: MYCOPHENOLIC ACID
  11. GABAPENTIN. [Concomitant]
     Active Substance: GABAPENTIN
  12. TRESIBA [Concomitant]
     Active Substance: INSULIN DEGLUDEC
  13. FINASTERIDE. [Concomitant]
     Active Substance: FINASTERIDE
  14. ESBRIET [Suspect]
     Active Substance: PIRFENIDONE
     Indication: IDIOPATHIC PULMONARY FIBROSIS
     Route: 048
     Dates: start: 201905, end: 20200525
  15. ARIPIPRAZOLE. [Concomitant]
     Active Substance: ARIPIPRAZOLE
  16. TAMSULOSIN [Concomitant]
     Active Substance: TAMSULOSIN
  17. TRELEGY ELLIPTA [Concomitant]
     Active Substance: FLUTICASONE FUROATE\UMECLIDINIUM BROMIDE\VILANTEROL TRIFENATATE

REACTIONS (1)
  - Death [Fatal]

NARRATIVE: CASE EVENT DATE: 20200525
